FAERS Safety Report 21976073 (Version 1)
Quarter: 2023Q1

REPORT INFORMATION
  Report Type: Spontaneous
  Country: FR (occurrence: FR)
  Receive Date: 20230210
  Receipt Date: 20230210
  Transmission Date: 20230418
  Serious: Yes (Other)
  Sender: FDA-Public Use
  Company Number: FR-AFSSAPS-PV2023000036

PATIENT
  Age: 69 Year
  Sex: Male
  Weight: 73 kg

DRUGS (11)
  1. ENTECAVIR [Suspect]
     Active Substance: ENTECAVIR
     Indication: Hepatitis B
     Dosage: 0.5 MILLIGRAM
     Route: 048
     Dates: start: 20221224, end: 20230117
  2. MABTHERA [Suspect]
     Active Substance: RITUXIMAB
     Indication: Microscopic polyangiitis
     Dosage: 700 MILLIGRAM
     Route: 042
     Dates: start: 20221230
  3. MABTHERA [Suspect]
     Active Substance: RITUXIMAB
     Dosage: 700 MILLIGRAM
     Route: 042
     Dates: start: 20230113
  4. MABTHERA [Suspect]
     Active Substance: RITUXIMAB
     Dosage: 700 MILLIGRAM
     Route: 042
     Dates: start: 20230106
  5. MABTHERA [Suspect]
     Active Substance: RITUXIMAB
     Dosage: 700 MILLIGRAM
     Route: 042
     Dates: start: 20221224
  6. ENBREL [Concomitant]
     Active Substance: ETANERCEPT
     Indication: Product used for unknown indication
     Dosage: 50 MILLIGRAM, EVERY WEEK
     Route: 048
  7. ATORVASTATIN [Concomitant]
     Active Substance: ATORVASTATIN
     Indication: Product used for unknown indication
     Dosage: 10 MILLIGRAM, ONCE A DAY
     Route: 048
  8. PREDNISONE [Concomitant]
     Active Substance: PREDNISONE
     Indication: Product used for unknown indication
     Dosage: 50 MILLIGRAM, ONCE A DAY
     Route: 048
     Dates: start: 20221224
  9. VALSARTAN [Concomitant]
     Active Substance: VALSARTAN
     Indication: Product used for unknown indication
     Dosage: 80 MILLIGRAM, ONCE A DAY
     Route: 048
  10. BACTRIM [Concomitant]
     Active Substance: SULFAMETHOXAZOLE\TRIMETHOPRIM
     Indication: Product used for unknown indication
     Dosage: 1 DOSAGE FORM, EVERY OTHER DAY
     Route: 048
     Dates: start: 20221224, end: 20230109
  11. LANSOPRAZOLE [Concomitant]
     Active Substance: LANSOPRAZOLE
     Indication: Product used for unknown indication
     Dosage: 30 MILLIGRAM, ONCE A DAY
     Route: 048

REACTIONS (1)
  - Thrombocytopenia [Recovering/Resolving]

NARRATIVE: CASE EVENT DATE: 20230106
